FAERS Safety Report 24157993 (Version 1)
Quarter: 2024Q3

REPORT INFORMATION
  Report Type: Spontaneous
  Country: US (occurrence: None)
  Receive Date: 20240731
  Receipt Date: 20240731
  Transmission Date: 20241016
  Serious: Yes (Hospitalization)
  Sender: Public
  Company Number: None

PATIENT
  Age: 32 Year
  Sex: Female

DRUGS (9)
  1. XOLAIR [Suspect]
     Active Substance: OMALIZUMAB
     Indication: Immunodeficiency common variable
     Dosage: OTHER QUANTITY : 2 SYRINGES UNDER THE SKIN ;?FREQUENCY : EVERY OTHER WEEK;?
     Route: 058
     Dates: start: 20190215
  2. ALBUTEROL AER HFA [Concomitant]
  3. AMITRIPTYLIN [Concomitant]
  4. BENONATATE [Concomitant]
  5. BOOSTRIX [Concomitant]
     Active Substance: TETANUS TOXOID, REDUCED DIPHTHERIA TOXOID AND ACELLULAR PERTUSSIS VACCINE, ADSORBED ANTIGENS
  6. CARBAMAZEPIN [Concomitant]
  7. CELECOXIB [Concomitant]
     Active Substance: CELECOXIB
  8. CETIRIZINE [Concomitant]
     Active Substance: CETIRIZINE HYDROCHLORIDE
  9. CLOBETASONL [Concomitant]

REACTIONS (4)
  - Sinus operation [None]
  - Iatrogenic injury [None]
  - Vascular procedure complication [None]
  - Sinusitis [None]

NARRATIVE: CASE EVENT DATE: 20240618
